FAERS Safety Report 11262082 (Version 1)
Quarter: 2015Q3

REPORT INFORMATION
  Report Type: Spontaneous
  Country: GB (occurrence: GB)
  Receive Date: 20150710
  Receipt Date: 20150710
  Transmission Date: 20151125
  Serious: Yes (Other)
  Sender: FDA-Public Use
  Company Number: GB-UCBSA-2015022044

PATIENT
  Age: 59 Year
  Sex: Female

DRUGS (2)
  1. CIMZIA [Suspect]
     Active Substance: CERTOLIZUMAB PEGOL
     Indication: RHEUMATOID ARTHRITIS
     Dosage: 400 MG (TWO 200MG INJECTIONS), EV 2 WEEKS(QOW)
     Route: 058
     Dates: start: 20150512, end: 20150609
  2. CIMZIA [Suspect]
     Active Substance: CERTOLIZUMAB PEGOL
     Dosage: 200 MG, (ONE INJECTION ON 23-JUN-2015 AND ANOTHER ON 30-JUN-2015)WEEKLY (QW)
     Route: 058
     Dates: start: 20150623

REACTIONS (2)
  - Inappropriate schedule of drug administration [Unknown]
  - Overdose [Unknown]

NARRATIVE: CASE EVENT DATE: 20150630
